FAERS Safety Report 21573839 (Version 1)
Quarter: 2022Q4

REPORT INFORMATION
  Report Type: Spontaneous
  Country: US (occurrence: None)
  Receive Date: 20221108
  Receipt Date: 20221108
  Transmission Date: 20230112
  Serious: Yes (Hospitalization)
  Sender: FDA-Public Use
  Company Number: None

PATIENT
  Sex: Female

DRUGS (1)
  1. CAPECITABINE [Suspect]
     Active Substance: CAPECITABINE
     Indication: Hepatic cancer
     Route: 048
     Dates: start: 20221108

REACTIONS (4)
  - Vomiting [None]
  - Abdominal pain upper [None]
  - Pain [None]
  - Colon cancer [None]
